FAERS Safety Report 10728834 (Version 1)
Quarter: 2015Q1

REPORT INFORMATION
  Report Type: Spontaneous
  Country: US (occurrence: None)
  Receive Date: 20150120
  Receipt Date: 20150120
  Transmission Date: 20150721
  Serious: No
  Sender: FDA-Public Use
  Company Number: None

PATIENT
  Age: 54 Year
  Sex: Male
  Weight: 83.92 kg

DRUGS (11)
  1. LYCOPENE [Concomitant]
     Active Substance: LYCOPENE
  2. MAGNESIUM [Concomitant]
     Active Substance: MAGNESIUM
  3. PRAVASTATIN [Concomitant]
     Active Substance: PRAVASTATIN\PRAVASTATIN SODIUM
  4. ONE-A-DAY NOS [Concomitant]
     Active Substance: MINERALS\VITAMINS
  5. SAW PALMETTO [Concomitant]
     Active Substance: SAW PALMETTO
  6. PECTIN [Concomitant]
     Active Substance: PECTIN
  7. COENZYME Q10 [Concomitant]
     Active Substance: UBIDECARENONE
  8. FENOFIBRATE. [Concomitant]
     Active Substance: FENOFIBRATE
  9. ASPRIN [Concomitant]
     Active Substance: ASPIRIN
  10. ZYFLAMEND [Concomitant]
  11. CIALIS [Suspect]
     Active Substance: TADALAFIL
     Indication: ERECTILE DYSFUNCTION
     Dosage: AS NEEDED TAKEN BY MOUTH
     Route: 048
     Dates: start: 20150116, end: 20150116

REACTIONS (1)
  - Tinea manuum [None]

NARRATIVE: CASE EVENT DATE: 20150116
